FAERS Safety Report 7773161-4 (Version None)
Quarter: 2011Q3

REPORT INFORMATION
  Report Type: 
  Country: None (occurrence: None)
  Receive Date: 20110922
  Receipt Date: 20110413
  Transmission Date: 20111222
  Serious: No
  Sender: FDA-Public Use
  Company Number: US-ASTRAZENECA-2011SE21096

PATIENT
  Age: 48 Year
  Sex: Male
  Weight: 79.4 kg

DRUGS (2)
  1. XANAX [Concomitant]
     Indication: SLEEP DISORDER
     Dosage: 2-4 MG
  2. SEROQUEL [Suspect]
     Indication: INSOMNIA
     Dosage: 200-800 MG HS
     Route: 048
     Dates: start: 20050101

REACTIONS (4)
  - WEIGHT INCREASED [None]
  - GLYCOSYLATED HAEMOGLOBIN INCREASED [None]
  - ELECTROCARDIOGRAM ABNORMAL [None]
  - OFF LABEL USE [None]
